APPROVED DRUG PRODUCT: TIZANIDINE HYDROCHLORIDE
Active Ingredient: TIZANIDINE HYDROCHLORIDE
Strength: EQ 2MG BASE
Dosage Form/Route: TABLET;ORAL
Application: A091283 | Product #001 | TE Code: AB
Applicant: UNICHEM LABORATORIES LTD
Approved: Nov 28, 2012 | RLD: No | RS: No | Type: RX